FAERS Safety Report 7513940-1 (Version None)
Quarter: 2011Q2

REPORT INFORMATION
  Report Type: 
  Country: None (occurrence: None)
  Receive Date: 20110531
  Receipt Date: 20110523
  Transmission Date: 20111010
  Serious: Yes (Other)
  Sender: FDA-Public Use
  Company Number: NL-B.I. PHARMACEUTICALS,INC./RIDGEFIELD-2011-NL-00200NL

PATIENT
  Sex: Male

DRUGS (2)
  1. PRAMIPEXOLE DIHYCHLLORIDE [Suspect]
     Indication: PARKINSON'S DISEASE
  2. OTHER NON-SPECIFIED MEDICATIONS [Concomitant]

REACTIONS (2)
  - PATHOLOGICAL GAMBLING [None]
  - IMPRISONMENT [None]
